FAERS Safety Report 21053799 (Version 1)
Quarter: 2022Q3

REPORT INFORMATION
  Report Type: Spontaneous
  Country: US (occurrence: US)
  Receive Date: 20220707
  Receipt Date: 20220707
  Transmission Date: 20221027
  Serious: No
  Sender: FDA-Public Use
  Company Number: US-BAYER-2022A092239

PATIENT
  Sex: Male

DRUGS (1)
  1. MIRALAX [Suspect]
     Active Substance: POLYETHYLENE GLYCOL 3350
     Dosage: 6 OUNCES
     Route: 048
     Dates: start: 202206

REACTIONS (3)
  - Hypersensitivity [Unknown]
  - Pruritus [Recovered/Resolved]
  - Urticaria [Recovered/Resolved]
